FAERS Safety Report 8326408-X (Version None)
Quarter: 2012Q2

REPORT INFORMATION
  Report Type: 
  Country: None (occurrence: None)
  Receive Date: 20120501
  Receipt Date: 20120420
  Transmission Date: 20120825
  Serious: Yes (Hospitalization, Disabling)
  Sender: FDA-Public Use
  Company Number: US-MERCK-1204USA03119

PATIENT
  Age: 56 Year
  Sex: Female
  Weight: 67 kg

DRUGS (10)
  1. FOSAMAX [Suspect]
     Indication: OSTEOPENIA
     Route: 048
     Dates: start: 20010501
  2. FOSAMAX [Suspect]
     Route: 048
     Dates: start: 20021001, end: 20040101
  3. INDERAL [Concomitant]
     Route: 065
     Dates: start: 19700101
  4. MAXZIDE [Concomitant]
     Route: 065
     Dates: start: 19700101
  5. FOSAMAX [Suspect]
     Route: 048
     Dates: start: 20010709
  6. FOSAMAX [Suspect]
     Route: 048
     Dates: start: 20040501
  7. FOSAMAX [Suspect]
     Route: 048
     Dates: start: 20010709
  8. FOSAMAX [Suspect]
     Indication: OSTEOPOROSIS
     Route: 048
     Dates: start: 20010501
  9. FOSAMAX [Suspect]
     Route: 048
     Dates: start: 20021001, end: 20040101
  10. FOSAMAX [Suspect]
     Route: 048
     Dates: start: 20040501

REACTIONS (4)
  - SPINAL FRACTURE [None]
  - OSTEOARTHRITIS [None]
  - FEMUR FRACTURE [None]
  - DRUG DEPENDENCE [None]
